FAERS Safety Report 17150222 (Version 1)
Quarter: 2019Q4

REPORT INFORMATION
  Report Type: Spontaneous
  Country: US (occurrence: US)
  Receive Date: 20191120
  Receipt Date: 20191120
  Transmission Date: 20200122
  Serious: No
  Sender: FDA-Public Use
  Company Number: None

PATIENT
  Age: 47 Year
  Sex: Male

DRUGS (4)
  1. AMLODIPINE [Concomitant]
     Active Substance: AMLODIPINE BESYLATE
  2. NORCO [Concomitant]
     Active Substance: ACETAMINOPHEN\HYDROCODONE BITARTRATE
  3. CARVEDILOL. [Concomitant]
     Active Substance: CARVEDILOL
  4. SOFOSBUVIR /VELPATASVIR 400-100 MG [Suspect]
     Active Substance: SOFOSBUVIR\VELPATASVIR
     Route: 048
     Dates: start: 201910

REACTIONS (2)
  - Headache [None]
  - Blood pressure increased [None]

NARRATIVE: CASE EVENT DATE: 20191120
